FAERS Safety Report 21340904 (Version 1)
Quarter: 2022Q3

REPORT INFORMATION
  Report Type: Other
  Country: None (occurrence: IT)
  Receive Date: 20220916
  Receipt Date: 20220916
  Transmission Date: 20221027
  Serious: Yes (Hospitalization)
  Sender: FDA-Public Use
  Company Number: IT-OrBion Pharmaceuticals Private Limited-2132912

PATIENT
  Age: 55 Year
  Sex: Male
  Weight: 110 kg

DRUGS (2)
  1. SUMATRIPTAN [Suspect]
     Active Substance: SUMATRIPTAN
     Indication: Migraine
     Route: 058
  2. ERENUMAB [Interacting]
     Active Substance: ERENUMAB
     Route: 065

REACTIONS (5)
  - Myocardial infarction [Recovered/Resolved]
  - Electrocardiogram ST segment elevation [Recovered/Resolved]
  - Atrial fibrillation [Recovered/Resolved]
  - Troponin increased [Recovered/Resolved]
  - Drug interaction [Recovered/Resolved]

NARRATIVE: CASE EVENT DATE: 20190829
